FAERS Safety Report 23157990 (Version 3)
Quarter: 2023Q4

REPORT INFORMATION
  Report Type: Report from Study
  Country: US (occurrence: US)
  Receive Date: 20231108
  Receipt Date: 20231122
  Transmission Date: 20240110
  Serious: Yes (Hospitalization, Other)
  Sender: FDA-Public Use
  Company Number: US-TAKEDA-2023TUS107174

PATIENT
  Age: 32 Year
  Sex: Female
  Weight: 71 kg

DRUGS (17)
  1. HUMAN IMMUNOGLOBULIN G\HYALURONIDASE RECOMBINANT HUMAN [Suspect]
     Active Substance: HUMAN IMMUNOGLOBULIN G\HYALURONIDASE (HUMAN RECOMBINANT)
     Indication: Primary immunodeficiency syndrome
     Dosage: 7.5 GRAM
     Route: 058
     Dates: start: 20230928
  2. HUMAN IMMUNOGLOBULIN G\HYALURONIDASE RECOMBINANT HUMAN [Suspect]
     Active Substance: HUMAN IMMUNOGLOBULIN G\HYALURONIDASE (HUMAN RECOMBINANT)
     Indication: Immunodeficiency common variable
     Dosage: 17.5 GRAM
     Route: 058
     Dates: start: 20231006
  3. HUMAN IMMUNOGLOBULIN G\HYALURONIDASE RECOMBINANT HUMAN [Suspect]
     Active Substance: HUMAN IMMUNOGLOBULIN G\HYALURONIDASE (HUMAN RECOMBINANT)
     Dosage: 25 GRAM
     Route: 058
     Dates: start: 20231019, end: 20231019
  4. ZYRTEC [Concomitant]
     Active Substance: CETIRIZINE HYDROCHLORIDE
     Dosage: 10 MILLIGRAM, QD
     Route: 065
  5. CAFFEINE [Concomitant]
     Active Substance: CAFFEINE
     Dosage: 100 MILLIGRAM, QD
     Route: 065
  6. DOXYCYCLINE [Concomitant]
     Active Substance: DOXYCYCLINE
     Dosage: 100 MILLIGRAM, BID
     Route: 065
  7. FAMOTIDINE [Concomitant]
     Active Substance: FAMOTIDINE
     Dosage: 20 MILLIGRAM
     Route: 065
  8. ZOFRAN [Concomitant]
     Active Substance: ONDANSETRON HYDROCHLORIDE
     Indication: Headache
     Dosage: 4 MILLIGRAM
     Route: 065
  9. ADDERALL [Concomitant]
     Active Substance: AMPHETAMINE ASPARTATE\AMPHETAMINE SULFATE\DEXTROAMPHETAMINE SACCHARATE\DEXTROAMPHETAMINE SULFATE
     Dosage: 20 MILLIGRAM, BID
     Route: 065
  10. WELLBUTRIN [Concomitant]
     Active Substance: BUPROPION HYDROCHLORIDE
     Dosage: 300 MILLIGRAM, QD
     Route: 065
  11. QULIPTA [Concomitant]
     Active Substance: ATOGEPANT
     Dosage: 60 MILLIGRAM, QD
     Route: 065
  12. PREDNISONE [Concomitant]
     Active Substance: PREDNISONE
     Dosage: 4 MILLIGRAM
     Route: 065
  13. ROBAXIN [Concomitant]
     Active Substance: METHOCARBAMOL
     Dosage: 250 MILLIGRAM, Q8HR
     Route: 065
  14. VICKS DAYQUIL [Concomitant]
     Active Substance: DEXTROMETHORPHAN HYDROBROMIDE\GUAIFENESIN
     Dosage: UNK UNK, Q6HR
     Route: 065
  15. REGLAN [Concomitant]
     Active Substance: METOCLOPRAMIDE HYDROCHLORIDE
     Indication: Headache
     Dosage: 10 MILLIGRAM, Q6HR
     Route: 065
  16. MUCINEX [Concomitant]
     Active Substance: GUAIFENESIN
     Dosage: 600 MILLIGRAM, BID
     Route: 065
  17. LIDOCAINE [Concomitant]
     Active Substance: LIDOCAINE
     Dosage: UNK
     Route: 065

REACTIONS (41)
  - Meningitis aseptic [Not Recovered/Not Resolved]
  - Renal impairment [Recovered/Resolved]
  - Sinusitis [Not Recovered/Not Resolved]
  - Bronchitis [Unknown]
  - Weight decreased [Unknown]
  - Varicose vein [Unknown]
  - Vascular pain [Unknown]
  - Product distribution issue [Unknown]
  - Decreased appetite [Unknown]
  - Infusion site nodule [Unknown]
  - Chills [Unknown]
  - Infusion site pain [Unknown]
  - Headache [Recovered/Resolved]
  - Fatigue [Unknown]
  - Lumbar puncture [Unknown]
  - Rash pruritic [Unknown]
  - Hepatic function abnormal [Recovered/Resolved]
  - Dehydration [Unknown]
  - Sinus headache [Not Recovered/Not Resolved]
  - Meningitis [Unknown]
  - Abdominal discomfort [Unknown]
  - Thermal burn [Unknown]
  - Pain [Unknown]
  - Butterfly rash [Unknown]
  - Systemic lupus erythematosus rash [Unknown]
  - Ear pain [Unknown]
  - Throat tightness [Unknown]
  - Upper-airway cough syndrome [Unknown]
  - Photophobia [Unknown]
  - Musculoskeletal stiffness [Unknown]
  - Gravitational oedema [Unknown]
  - Pain in extremity [Unknown]
  - Abdominal pain upper [Unknown]
  - Infusion site warmth [Unknown]
  - Infusion site haematoma [Unknown]
  - Myalgia [Unknown]
  - Nausea [Unknown]
  - Infusion site erythema [Unknown]
  - Infusion site bruising [Unknown]
  - Abdominal pain [Unknown]
  - Diarrhoea [Unknown]

NARRATIVE: CASE EVENT DATE: 20231028
